FAERS Safety Report 6765780-9 (Version None)
Quarter: 2010Q2

REPORT INFORMATION
  Report Type: 
  Country: None (occurrence: None)
  Receive Date: 20100611
  Receipt Date: 20100604
  Transmission Date: 20101027
  Serious: Yes (Death)
  Sender: FDA-Public Use
  Company Number: JP-ROCHE-691120

PATIENT
  Sex: Female
  Weight: 31 kg

DRUGS (12)
  1. ROCEPHIN [Suspect]
     Indication: PNEUMONIA
     Dosage: ROUTE: INTRAVENOUS (NOT OTHERWISE SPECIFIED)
     Route: 042
     Dates: start: 20100215, end: 20100216
  2. DOBUTAMINE HYDROCHLORIDE [Concomitant]
     Dosage: DRUG NAME:DOBUPUM
     Route: 042
     Dates: start: 20100206, end: 20100216
  3. LIPITOR [Concomitant]
     Route: 048
     Dates: start: 20050525, end: 20100223
  4. TAKEPRON [Concomitant]
     Route: 048
     Dates: start: 20070623, end: 20100221
  5. ASPIRIN [Concomitant]
     Route: 048
     Dates: start: 20070605, end: 20100223
  6. ANCARON [Concomitant]
     Route: 048
     Dates: start: 20070724, end: 20100221
  7. LASIX [Concomitant]
     Route: 048
     Dates: start: 20070623, end: 20100223
  8. LENDORMIN [Concomitant]
     Route: 048
     Dates: start: 20100209, end: 20100221
  9. PIMOBENDAN [Concomitant]
     Route: 048
     Dates: start: 20070710, end: 20100221
  10. CLARITH [Concomitant]
     Route: 048
     Dates: start: 20100213, end: 20100215
  11. FERROMIA [Concomitant]
     Route: 048
     Dates: start: 20100213, end: 20100221
  12. ALDACTONE [Concomitant]
     Route: 048
     Dates: start: 20070710, end: 20100221

REACTIONS (2)
  - HEPATITIS FULMINANT [None]
  - MULTI-ORGAN FAILURE [None]
